FAERS Safety Report 8820493 (Version 1)
Quarter: 2012Q4

REPORT INFORMATION
  Report Type: 
  Country: US (occurrence: US)
  Receive Date: 20121002
  Receipt Date: 20121002
  Transmission Date: 20130627
  Serious: No
  Sender: FDA-Public Use
  Company Number: US-BAYER-2012-099744

PATIENT
  Age: 38 Year
  Sex: Male

DRUGS (1)
  1. GADAVIST [Suspect]
     Dosage: 13 ml, UNK
     Dates: start: 20120924

REACTIONS (8)
  - Nasal congestion [None]
  - Cough [None]
  - Throat irritation [None]
  - Erythema [None]
  - Ocular hyperaemia [None]
  - Eye swelling [None]
  - Chest discomfort [None]
  - Palpitations [None]
